FAERS Safety Report 15717619 (Version 1)
Quarter: 2018Q4

REPORT INFORMATION
  Report Type: Spontaneous
  Country: US (occurrence: US)
  Receive Date: 20181213
  Receipt Date: 20181213
  Transmission Date: 20190205
  Serious: No
  Sender: FDA-Public Use
  Company Number: US-ASTELLAS-2018US018155

PATIENT
  Sex: Female
  Weight: 59 kg

DRUGS (1)
  1. TARCEVA [Suspect]
     Active Substance: ERLOTINIB HYDROCHLORIDE
     Indication: MALIGNANT RESPIRATORY TRACT NEOPLASM
     Dosage: 150 MG, UNKNOWN FREQ. (TAKE 1 TABLET BY MOUTH ONC)
     Route: 048
     Dates: start: 20171102

REACTIONS (1)
  - Cough [Unknown]
